FAERS Safety Report 18659084 (Version 1)
Quarter: 2020Q4

REPORT INFORMATION
  Report Type: Spontaneous
  Country: US (occurrence: US)
  Receive Date: 20201224
  Receipt Date: 20201224
  Transmission Date: 20210114
  Serious: No
  Sender: FDA-Public Use
  Company Number: US-TAKEDA-2020TUS059668

PATIENT
  Age: 77 Year
  Sex: Female

DRUGS (1)
  1. ALUNBRIG [Suspect]
     Active Substance: BRIGATINIB
     Indication: METASTASIS
     Dosage: 120 MILLIGRAM, QD
     Route: 048
     Dates: start: 202011

REACTIONS (3)
  - Nasal congestion [Unknown]
  - Asthma [Unknown]
  - Fatigue [Unknown]

NARRATIVE: CASE EVENT DATE: 20201214
